FAERS Safety Report 5596010-1 (Version None)
Quarter: 2008Q1

REPORT INFORMATION
  Report Type: 
  Country: None (occurrence: None)
  Receive Date: 20080118
  Receipt Date: 20070530
  Transmission Date: 20080703
  Serious: Yes (Death, Other)
  Sender: FDA-Public Use
  Company Number: US-ASTRAZENECA-2006UW11487

PATIENT
  Sex: Male
  Weight: 100 kg

DRUGS (1)
  1. SEROQUEL [Suspect]
     Indication: MENTAL DISORDER
     Route: 048
     Dates: start: 20010221, end: 20020802

REACTIONS (5)
  - CARDIAC FAILURE [None]
  - CARDIOGENIC SHOCK [None]
  - DIABETES MELLITUS [None]
  - PANCREATITIS [None]
  - SEPSIS [None]
